FAERS Safety Report 16629683 (Version 1)
Quarter: 2019Q3

REPORT INFORMATION
  Report Type: Report from Study
  Country: US (occurrence: US)
  Receive Date: 20190725
  Receipt Date: 20190725
  Transmission Date: 20191004
  Serious: Yes (Other)
  Sender: FDA-Public Use
  Company Number: US-PFIZER INC-2019288152

PATIENT
  Age: 35 Year
  Sex: Female

DRUGS (2)
  1. FASLODEX [Suspect]
     Active Substance: FULVESTRANT
     Dosage: UNK
  2. IBRANCE [Suspect]
     Active Substance: PALBOCICLIB
     Indication: BREAST CANCER FEMALE
     Dosage: 125 MG, CYCLIC(DAILY DAY 1-21 OF 28 DAY CYCLE)
     Route: 048
     Dates: start: 20190611, end: 201907

REACTIONS (8)
  - Contusion [Unknown]
  - Fatigue [Unknown]
  - Rash [Recovering/Resolving]
  - Nausea [Unknown]
  - Urine odour abnormal [Unknown]
  - White blood cell count decreased [Not Recovered/Not Resolved]
  - Dysgeusia [Unknown]
  - Hypersensitivity [Unknown]

NARRATIVE: CASE EVENT DATE: 2019
